FAERS Safety Report 13806593 (Version 1)
Quarter: 2017Q3

REPORT INFORMATION
  Report Type: Report from Study
  Country: US (occurrence: US)
  Receive Date: 20170728
  Receipt Date: 20170728
  Transmission Date: 20171127
  Serious: No
  Sender: FDA-Public Use
  Company Number: US-AMGEN-USASL2017065084

PATIENT
  Age: 63 Year
  Sex: Female

DRUGS (2)
  1. REPATHA [Suspect]
     Active Substance: EVOLOCUMAB
     Indication: BLOOD CHOLESTEROL INCREASED
  2. REPATHA [Suspect]
     Active Substance: EVOLOCUMAB
     Indication: HYPERCHOLESTEROLAEMIA
     Dosage: 420 MG, QMO
     Route: 065
     Dates: start: 2016

REACTIONS (6)
  - Bronchitis [Unknown]
  - Drug dose omission [Unknown]
  - Gastric disorder [Unknown]
  - Rhinorrhoea [Recovered/Resolved]
  - Wrong technique in product usage process [Unknown]
  - Influenza [Unknown]

NARRATIVE: CASE EVENT DATE: 201704
